FAERS Safety Report 6653840-2 (Version None)
Quarter: 2010Q1

REPORT INFORMATION
  Report Type: 
  Country: None (occurrence: None)
  Receive Date: 20100326
  Receipt Date: 20100319
  Transmission Date: 20100710
  Serious: Yes (Other)
  Sender: FDA-Public Use
  Company Number: B0641297A

PATIENT
  Age: 67 Year
  Sex: Male

DRUGS (3)
  1. DUTASTERIDE [Suspect]
     Indication: BENIGN PROSTATIC HYPERPLASIA
     Route: 048
     Dates: start: 20090721
  2. SIMVASTATIN [Concomitant]
     Indication: BLOOD CHOLESTEROL INCREASED
     Route: 048
     Dates: start: 20060101
  3. IMIGRAN [Concomitant]
     Indication: MIGRAINE
     Route: 045
     Dates: start: 20040101

REACTIONS (1)
  - PARAESTHESIA [None]
